FAERS Safety Report 8320422 (Version 6)
Quarter: 2012Q4

REPORT INFORMATION
  Report Type: 
  Country: US (occurrence: None)
  Receive Date: 20111221
  Receipt Date: 20121121
  Transmission Date: 20130627
  Serious: Yes (Hospitalization, Other)
  Sender: FDA-Public Use
  Company Number: JPI-P-018647

PATIENT
  Age: 33 Year
  Sex: Female
  Weight: 90.72 kg

DRUGS (18)
  1. XYREM [Suspect]
     Indication: NARCOLEPSY
     Dosage: 9 GM (4.5 GM, 2 IN 1 D), ORAL
     Route: 048
     Dates: start: 20100217
  2. XYREM [Suspect]
     Indication: NARCOLEPSY
     Dosage: 9 GM (4.5 GM, 2 IN 1 D), ORAL
     Route: 048
     Dates: start: 20110126
  3. XYREM [Suspect]
     Indication: NARCOLEPSY
     Dosage: 4.5 GM (4.5 GM, 1 IN 1 D), ORAL
     Route: 048
     Dates: start: 20100217
  4. XYREM [Suspect]
     Indication: NARCOLEPSY
     Dosage: 9 GM (4.5 GM, 2 IN 1 D), ORAL
     Route: 048
     Dates: start: 20110126
  5. TOPIRAMATE [Suspect]
     Indication: MIGRAINE PROPHYLAXIS
     Dates: end: 201012
  6. NORGESTIMATE AND ETHINYL ESTRADIOL [Concomitant]
  7. RIZATRIPTAN BENZOATE [Concomitant]
  8. OMEPRAZOLE [Concomitant]
  9. VENLAFAXINE HYDROCHLORIDE [Concomitant]
  10. ALPRAZOLAM [Concomitant]
  11. PROMETHAZINE [Concomitant]
  12. ARMODAFINIL [Concomitant]
  13. DEXTROAMPHETAMINE [Concomitant]
  14. FLUTICASONE PROPIONATE [Concomitant]
  15. ALBUTEROL [Concomitant]
  16. ACYCLOVIR [Concomitant]
  17. LIDOCAINE [Concomitant]
  18. DESLORATADINE [Concomitant]

REACTIONS (13)
  - EMOTIONAL DISORDER [None]
  - AGGRESSION [None]
  - METABOLIC ACIDOSIS [None]
  - CONVULSION [None]
  - COMMUNICATION DISORDER [None]
  - APHASIA [None]
  - PREGNANCY [None]
  - ABORTION SPONTANEOUS [None]
  - IMPAIRED WORK ABILITY [None]
  - SOMNOLENCE [None]
  - AMNESIA [None]
  - MATERNAL EXPOSURE DURING PREGNANCY [None]
  - FEELING OF DESPAIR [None]
